FAERS Safety Report 5739985-X (Version None)
Quarter: 2008Q2

REPORT INFORMATION
  Report Type: 
  Country: None (occurrence: None)
  Receive Date: 20080516
  Receipt Date: 20080506
  Transmission Date: 20081010
  Serious: Yes (Other)
  Sender: FDA-Public Use
  Company Number: GB-AMGEN-US278318

PATIENT
  Age: 63 Year
  Sex: Male
  Weight: 75 kg

DRUGS (7)
  1. ENBREL [Suspect]
     Indication: ANKYLOSING SPONDYLITIS
     Dosage: 25MG FREQUENCY UNKNOWN
     Route: 058
     Dates: start: 20080321
  2. ATORVASTATIN [Concomitant]
     Indication: HYPERCHOLESTEROLAEMIA
     Dosage: 20MG FREQUENCY UNKNOWN
     Route: 065
     Dates: start: 20050101
  3. SULFASALAZINE [Concomitant]
     Indication: ANKYLOSING SPONDYLITIS
     Dosage: 2G FREQUENCY UNKNOWN
     Route: 065
     Dates: start: 20041006
  4. LANSOPRAZOLE [Concomitant]
     Indication: REFLUX GASTRITIS
     Dosage: 15MG FREQUENCY UNKNOWN
     Route: 065
     Dates: start: 20030131
  5. LOSARTAN POTASSIUM [Concomitant]
     Indication: HYPERTENSION
     Dosage: 100MG FREQUENCY UNKNOWN
     Route: 065
     Dates: start: 20030131
  6. AMLODIPINE [Concomitant]
     Indication: HYPERTENSION
     Dosage: 5MG FREQUENCY UNKNOWN
     Route: 065
     Dates: start: 20050101
  7. DICLOFENAC [Concomitant]
     Indication: ANKYLOSING SPONDYLITIS
     Route: 065
     Dates: start: 20040608

REACTIONS (4)
  - DYSPNOEA [None]
  - INJECTION SITE INFLAMMATION [None]
  - NASOPHARYNGITIS [None]
  - RASH [None]
